FAERS Safety Report 6900610-3 (Version None)
Quarter: 2010Q3

REPORT INFORMATION
  Report Type: 
  Country: None (occurrence: None)
  Receive Date: 20100803
  Receipt Date: 20100722
  Transmission Date: 20110219
  Serious: No
  Sender: FDA-Public Use
  Company Number: US-JNJFOC-20100707625

PATIENT
  Sex: Female
  Weight: 63.5 kg

DRUGS (7)
  1. SANDOZ FENTANYL TRANSDERMAL SYSTEM [Suspect]
     Indication: BACK PAIN
     Route: 062
  2. SANDOZ FENTANYL TRANSDERMAL SYSTEM [Suspect]
     Route: 062
  3. SANDOZ FENTANYL TRANSDERMAL SYSTEM [Suspect]
     Route: 062
  4. DURAGESIC-100 [Suspect]
     Indication: BACK PAIN
     Route: 062
  5. DARVOCET [Concomitant]
     Indication: PAIN
     Dosage: EVERY 4-6 HOURS AS NEEDED
     Route: 048
  6. LORTAB [Concomitant]
     Indication: PAIN
     Route: 048
  7. PEPCID [Concomitant]
     Indication: DYSPEPSIA
     Route: 048

REACTIONS (5)
  - DRUG ADMINISTERED AT INAPPROPRIATE SITE [None]
  - DRUG INEFFECTIVE [None]
  - HYPERTENSION [None]
  - PAIN [None]
  - WRONG TECHNIQUE IN DRUG USAGE PROCESS [None]
